FAERS Safety Report 23585516 (Version 1)
Quarter: 2024Q1

REPORT INFORMATION
  Report Type: Spontaneous
  Country: CA (occurrence: CA)
  Receive Date: 20240301
  Receipt Date: 20240301
  Transmission Date: 20240410
  Serious: Yes (Other)
  Sender: FDA-Public Use
  Company Number: CA-CELLTRION INC.-2024CA004688

PATIENT

DRUGS (5)
  1. INFLECTRA [Suspect]
     Active Substance: INFLIXIMAB-DYYB
     Indication: Rheumatoid arthritis
     Dosage: 200 MG, EVERY 7 WEEKS
     Route: 042
     Dates: start: 20201020
  2. INFLECTRA [Suspect]
     Active Substance: INFLIXIMAB-DYYB
     Dosage: 200 MG, EVERY 7 WEEKS
     Route: 042
     Dates: start: 20240108
  3. METHOTREXATE SODIUM [Concomitant]
     Active Substance: METHOTREXATE SODIUM
     Dosage: 20 MG, WEEKLY
     Route: 065
  4. INDOMETHACIN SODIUM [Concomitant]
     Active Substance: INDOMETHACIN SODIUM
     Dosage: 50 MG, 1X/DAY
     Route: 065
  5. FOLIC ACID [Concomitant]
     Active Substance: FOLIC ACID
     Dosage: 1 DF, WEEKLY
     Route: 065

REACTIONS (10)
  - Knee arthroplasty [Unknown]
  - Night sweats [Recovering/Resolving]
  - Pyrexia [Recovered/Resolved]
  - Chills [Recovering/Resolving]
  - Sinus disorder [Recovering/Resolving]
  - Cough [Recovered/Resolved]
  - C-reactive protein increased [Recovering/Resolving]
  - Joint swelling [Recovering/Resolving]
  - Dyspepsia [Recovered/Resolved]
  - Musculoskeletal stiffness [Unknown]
